FAERS Safety Report 16715259 (Version 1)
Quarter: 2019Q4

REPORT INFORMATION
  Report Type: Spontaneous
  Country: US (occurrence: US)
  Receive Date: 20190816
  Receipt Date: 20190816
  Transmission Date: 20200122
  Serious: Yes (Life-Threatening, Hospitalization)
  Sender: FDA-Public Use
  Company Number: None

PATIENT
  Age: 43 Year
  Sex: Female
  Weight: 144 kg

DRUGS (4)
  1. CHOLECALCIFEROL D3-50 50000 UNIT CAPSULE EVERY WEEK [Concomitant]
  2. TIZANIDINE 4MG [Concomitant]
     Active Substance: TIZANIDINE
  3. BACLOFEN 10MG PO TID [Concomitant]
  4. DIFLUNISAL. [Suspect]
     Active Substance: DIFLUNISAL
     Indication: OSTEOARTHRITIS
     Route: 048
     Dates: start: 20190710, end: 20190728

REACTIONS (2)
  - Rash [None]
  - Stevens-Johnson syndrome [None]

NARRATIVE: CASE EVENT DATE: 20190728
